FAERS Safety Report 9396256 (Version 2)
Quarter: 2013Q3

REPORT INFORMATION
  Report Type: Spontaneous
  Country: DE (occurrence: DE)
  Receive Date: 20130711
  Receipt Date: 20130723
  Transmission Date: 20140515
  Serious: Yes (Death, Hospitalization, Other)
  Sender: FDA-Public Use
  Company Number: DE-TEVA-417021GER

PATIENT
  Age: 78 Year
  Sex: Female
  Weight: 62 kg

DRUGS (1)
  1. COPAXONE [Suspect]
     Indication: MULTIPLE SCLEROSIS
     Dates: start: 200611, end: 20130523

REACTIONS (2)
  - Bile duct cancer [Fatal]
  - Jaundice [Unknown]
